FAERS Safety Report 6652344-0 (Version None)
Quarter: 2010Q1

REPORT INFORMATION
  Report Type: 
  Country: None (occurrence: None)
  Receive Date: 20100323
  Receipt Date: 20100311
  Transmission Date: 20100710
  Serious: Yes (Other)
  Sender: FDA-Public Use
  Company Number: 2009SP029146

PATIENT
  Age: 37 Year
  Sex: Female
  Weight: 70.3075 kg

DRUGS (2)
  1. CLARITIN-D [Suspect]
     Indication: MULTIPLE ALLERGIES
     Dosage: 10 MG; ONCE; PO
     Route: 048
     Dates: start: 20090718, end: 20090718
  2. LORAZEPAM [Concomitant]

REACTIONS (6)
  - BLOOD PRESSURE INCREASED [None]
  - BONE PAIN [None]
  - DYSPNOEA [None]
  - FEELING ABNORMAL [None]
  - HYPOAESTHESIA [None]
  - PALPITATIONS [None]
